FAERS Safety Report 12331535 (Version 1)
Quarter: 2016Q2

REPORT INFORMATION
  Report Type: Spontaneous
  Country: US (occurrence: None)
  Receive Date: 20160503
  Receipt Date: 20160503
  Transmission Date: 20160815
  Serious: Yes (Hospitalization, Disabling)
  Sender: FDA-Public Use
  Company Number: None

PATIENT
  Age: 66 Year
  Sex: Male
  Weight: 97.52 kg

DRUGS (4)
  1. ELIQUIS [Suspect]
     Active Substance: APIXABAN
     Indication: THROMBOSIS PROPHYLAXIS
     Route: 048
     Dates: start: 20160418, end: 20160426
  2. VITAMIN D [Concomitant]
     Active Substance: CHOLECALCIFEROL
  3. ELIQUIS [Suspect]
     Active Substance: APIXABAN
     Indication: ATRIAL FIBRILLATION
     Route: 048
     Dates: start: 20160418, end: 20160426
  4. MULTI-VITAMIN [Concomitant]
     Active Substance: .ALPHA.-TOCOPHEROL ACETATE, DL-\ASCORBIC ACID\CYANOCOBALAMIN\FLUORIDE ION\FOLIC ACID\NIACIN\PYRIDOXINE\RIBOFLAVIN\THIAMINE\VITAMIN A\VITAMIN D

REACTIONS (11)
  - Vomiting [None]
  - Abdominal pain upper [None]
  - Disorientation [None]
  - Constipation [None]
  - Dyspnoea [None]
  - Headache [None]
  - Decreased appetite [None]
  - Insomnia [None]
  - Dizziness [None]
  - Nausea [None]
  - Peripheral swelling [None]

NARRATIVE: CASE EVENT DATE: 20160425
